FAERS Safety Report 7053426-4 (Version None)
Quarter: 2010Q4

REPORT INFORMATION
  Report Type: 
  Country: None (occurrence: None)
  Receive Date: 20101014
  Receipt Date: 20101007
  Transmission Date: 20110411
  Serious: Yes (Life-Threatening, Hospitalization)
  Sender: FDA-Public Use
  Company Number: 2010SP054088

PATIENT
  Age: 33 Year
  Sex: Male
  Weight: 58 kg

DRUGS (9)
  1. DESLORATADINE [Suspect]
     Indication: PRODUCT USED FOR UNKNOWN INDICATION
     Dosage: 5 MG; 5 MG
     Dates: end: 20100521
  2. DESLORATADINE [Suspect]
     Indication: PRODUCT USED FOR UNKNOWN INDICATION
     Dosage: 5 MG; 5 MG
     Dates: start: 20100426
  3. VENTOLIN [Concomitant]
  4. OMEPRAZOLE [Concomitant]
  5. FLUTICASONE PROPIONATE [Concomitant]
  6. SALMETEROL [Concomitant]
  7. FLIXONASE [Concomitant]
  8. OMEPRAZOLE [Concomitant]
  9. PREDNISONE [Concomitant]

REACTIONS (6)
  - ABDOMINAL PAIN UPPER [None]
  - ARTERIOSPASM CORONARY [None]
  - HYPOTENSION [None]
  - LUNG INFECTION [None]
  - MYOCARDIAL INFARCTION [None]
  - PULMONARY INFARCTION [None]
